FAERS Safety Report 7634376-9 (Version None)
Quarter: 2011Q3

REPORT INFORMATION
  Report Type: 
  Country: None (occurrence: None)
  Receive Date: 20110725
  Receipt Date: 20090511
  Transmission Date: 20111222
  Serious: Yes (Other)
  Sender: FDA-Public Use
  Company Number: US-BAYER-200826849NA

PATIENT
  Sex: Male
  Weight: 77.098 kg

DRUGS (28)
  1. MAGNEVIST [Suspect]
     Indication: IMAGING PROCEDURE
  2. OMNISCAN [Suspect]
     Dosage: UNK
  3. PREDNISONE [Concomitant]
  4. OMNISCAN [Suspect]
     Indication: ARTERIOGRAM
     Dosage: 40 ML OF 287MG/ML SOLUTION
     Route: 042
     Dates: start: 20060403, end: 20060403
  5. OMNISCAN [Suspect]
     Indication: IMAGING PROCEDURE
     Dosage: 60 ML OF 287MG/ML SOLUTION
     Route: 042
     Dates: start: 20060809, end: 20060809
  6. OPTIMARK [Suspect]
     Indication: ARTERIOGRAM
  7. ZOFRAN [Concomitant]
  8. HYDROMORPHONE HCL [Concomitant]
  9. PERCOCET [Concomitant]
  10. MAGNEVIST [Suspect]
     Indication: NUCLEAR MAGNETIC RESONANCE IMAGING
     Dosage: 15 ML, ONCE
     Dates: start: 20060922, end: 20060922
  11. MAGNEVIST [Suspect]
  12. PROHANCE [Suspect]
     Indication: ARTERIOGRAM
  13. HEPARIN [Concomitant]
  14. LASIX [Concomitant]
  15. MULTIHANCE [Suspect]
     Indication: NUCLEAR MAGNETIC RESONANCE IMAGING
  16. OXYCONTIN [Concomitant]
  17. COUMADIN [Concomitant]
  18. ATENOLOL [Concomitant]
  19. OPTIMARK [Suspect]
     Indication: NUCLEAR MAGNETIC RESONANCE IMAGING
  20. OMNISCAN [Suspect]
     Indication: NUCLEAR MAGNETIC RESONANCE IMAGING
     Dosage: 60 ML, ONCE
     Route: 042
     Dates: start: 20060709, end: 20060709
  21. PROHANCE [Suspect]
     Indication: NUCLEAR MAGNETIC RESONANCE IMAGING
  22. GADOLINIUM IN UNSPECIFIED DRUG [Suspect]
     Indication: NUCLEAR MAGNETIC RESONANCE IMAGING
     Dosage: UNK UNK, ONCE
     Route: 042
     Dates: start: 19940916, end: 19940916
  23. MAGNEVIST [Suspect]
     Indication: ARTERIOGRAM
     Dosage: 50 ML, ONCE
     Dates: start: 20060629, end: 20060629
  24. MULTIHANCE [Suspect]
     Indication: ARTERIOGRAM
  25. AMIODARONE HCL [Concomitant]
  26. CELLCEPT [Concomitant]
  27. EPOGEN [Concomitant]
  28. NORVASC [Concomitant]

REACTIONS (8)
  - FIBROSIS [None]
  - SCAR [None]
  - INJURY [None]
  - EMOTIONAL DISTRESS [None]
  - ANXIETY [None]
  - NEPHROGENIC SYSTEMIC FIBROSIS [None]
  - PAIN [None]
  - GENERAL PHYSICAL HEALTH DETERIORATION [None]
